FAERS Safety Report 6078063-X (Version None)
Quarter: 2009Q1

REPORT INFORMATION
  Report Type: 
  Country: None (occurrence: None)
  Receive Date: 20090213
  Receipt Date: 20090202
  Transmission Date: 20090719
  Serious: Yes (Hospitalization)
  Sender: FDA-Public Use
  Company Number: US-BAXTER-2009BH001911

PATIENT
  Age: 50 Year
  Sex: Female

DRUGS (7)
  1. GAMMAGARD S/D [Suspect]
     Indication: DEMYELINATING POLYNEUROPATHY
     Route: 042
     Dates: start: 20080212, end: 20080216
  2. PREGABALIN [Concomitant]
     Indication: DRUG USE FOR UNKNOWN INDICATION
     Route: 065
  3. DARVON [Concomitant]
     Indication: DRUG USE FOR UNKNOWN INDICATION
     Route: 065
  4. MOBIC [Concomitant]
     Indication: DRUG USE FOR UNKNOWN INDICATION
     Route: 065
  5. BENICAR [Concomitant]
     Indication: DRUG USE FOR UNKNOWN INDICATION
     Route: 065
  6. ATORVASTATIN CALCIUM [Concomitant]
     Indication: DRUG USE FOR UNKNOWN INDICATION
     Route: 065
  7. NEXIUM [Concomitant]
     Indication: DRUG USE FOR UNKNOWN INDICATION
     Route: 065

REACTIONS (5)
  - ASTHENIA [None]
  - CHROMATURIA [None]
  - DYSPNOEA [None]
  - FATIGUE [None]
  - HAEMOLYTIC ANAEMIA [None]
